FAERS Safety Report 11288139 (Version 3)
Quarter: 2015Q3

REPORT INFORMATION
  Report Type: Spontaneous
  Country: HU (occurrence: HU)
  Receive Date: 20150721
  Receipt Date: 20150805
  Transmission Date: 20151125
  Serious: Yes (Life-Threatening, Hospitalization)
  Sender: FDA-Public Use
  Company Number: HU-PFIZER INC-2015235403

PATIENT
  Sex: Female

DRUGS (2)
  1. COVEREX AS [Concomitant]
     Indication: HYPERTENSION
     Dosage: UNK
  2. ADVIL ULTRA FORTE [Suspect]
     Active Substance: IBUPROFEN
     Dosage: 1 DF, SINGLE
     Dates: start: 20150601, end: 20150601

REACTIONS (2)
  - Anaphylactic reaction [Recovered/Resolved]
  - Choking [Recovered/Resolved]

NARRATIVE: CASE EVENT DATE: 20150601
